FAERS Safety Report 4861539-8 (Version None)
Quarter: 2005Q4

REPORT INFORMATION
  Report Type: 
  Country: None (occurrence: None)
  Receive Date: 20051220
  Receipt Date: 20051209
  Transmission Date: 20060501
  Serious: Yes (Other)
  Sender: FDA-Public Use
  Company Number: CA-BRISTOL-MYERS SQUIBB COMPANY-13218110

PATIENT
  Age: 81 Year
  Sex: Male

DRUGS (7)
  1. TEQUIN [Suspect]
  2. ATROVENT [Concomitant]
  3. DYAZIDE [Concomitant]
  4. FLOVENT [Concomitant]
  5. QUESTRAN [Concomitant]
  6. SINGULAIR [Concomitant]
  7. VENTOLIN [Concomitant]

REACTIONS (1)
  - HYPERGLYCAEMIA [None]
